FAERS Safety Report 9877149 (Version 3)
Quarter: 2014Q1

REPORT INFORMATION
  Report Type: Spontaneous
  Country: US (occurrence: US)
  Receive Date: 20140206
  Receipt Date: 20140227
  Transmission Date: 20141002
  Serious: Yes (Hospitalization, Other)
  Sender: FDA-Public Use
  Company Number: US-JNJFOC-20140200978

PATIENT
  Age: 65 Year
  Sex: Male
  Weight: 88.1 kg

DRUGS (12)
  1. XARELTO [Suspect]
     Indication: CEREBROVASCULAR ACCIDENT PROPHYLAXIS
     Route: 048
     Dates: start: 20140117, end: 20140130
  2. XARELTO [Suspect]
     Indication: ATRIAL FIBRILLATION
     Route: 048
     Dates: start: 20140117, end: 20140130
  3. ATENOLOL [Concomitant]
     Dosage: IN THE EVENING (PM)
     Route: 048
  4. ATENOLOL [Concomitant]
     Route: 048
  5. LIPITOR [Concomitant]
     Route: 048
  6. BENAZEPRIL [Concomitant]
     Route: 048
  7. AMLODIPINE [Concomitant]
     Route: 048
  8. HCTZ [Concomitant]
     Route: 048
  9. SPIRIVA [Concomitant]
     Route: 055
  10. SYMBICORT [Concomitant]
     Dosage: DOSE: 160/4.5
     Route: 055
  11. SAW PALMETTO [Concomitant]
     Route: 048
  12. OMEGA 3 FISH OIL [Concomitant]
     Route: 065

REACTIONS (2)
  - Gastrointestinal haemorrhage [Recovering/Resolving]
  - Haemorrhagic anaemia [Recovering/Resolving]
